FAERS Safety Report 21715700 (Version 12)
Quarter: 2025Q4

REPORT INFORMATION
  Report Type: Spontaneous
  Country: US (occurrence: US)
  Receive Date: 20221212
  Receipt Date: 20251112
  Transmission Date: 20260118
  Serious: No
  Sender: PFIZER
  Company Number: US-PFIZER INC-PV202200120169

PATIENT
  Age: 43 Year
  Sex: Female
  Weight: 68.481 kg

DRUGS (2)
  1. BOSULIF [Suspect]
     Active Substance: BOSUTINIB MONOHYDRATE
     Indication: Chronic myeloid leukaemia
     Dosage: 400 MG, 1X/DAY (TAKE 4 TABS AT THE SAME TIME WITH FOOD)
     Route: 048
     Dates: start: 20220111
  2. BOSULIF [Suspect]
     Active Substance: BOSUTINIB MONOHYDRATE
     Dosage: 400 MG, 1X/DAY (TAKE 4 TABS AT THE SAME TIME WITH FOOD)
     Route: 048

REACTIONS (2)
  - Abdominal discomfort [Unknown]
  - Rash [Unknown]

NARRATIVE: CASE EVENT DATE: 20220101
